FAERS Safety Report 19028652 (Version 2)
Quarter: 2021Q2

REPORT INFORMATION
  Report Type: Other
  Country: ES (occurrence: ES)
  Receive Date: 20210319
  Receipt Date: 20210617
  Transmission Date: 20210717
  Serious: Yes (Other)
  Sender: FDA-Public Use
  Company Number: ES-ENCUBE-000047

PATIENT
  Age: 90 Year
  Sex: Female

DRUGS (3)
  1. CLOBETASOL PROPIONATE 0.05% CREAM [Suspect]
     Active Substance: CLOBETASOL PROPIONATE
     Indication: NEUTROPHILIC DERMATOSIS
     Dosage: 0.05% CREAM TWICE DAILY
  2. ATENOLOL/ATENOLOL HYDROCHLORIDE [Concomitant]
     Active Substance: ATENOLOL HYDROCHLORIDE
     Indication: HYPERTENSION
  3. SERTRALINE [Concomitant]
     Active Substance: SERTRALINE HYDROCHLORIDE
     Indication: DEPRESSION

REACTIONS (2)
  - Neutrophilic dermatosis [Recovered/Resolved]
  - Disease recurrence [Recovered/Resolved]
